FAERS Safety Report 4515374-0 (Version None)
Quarter: 2004Q4

REPORT INFORMATION
  Report Type: 
  Country: None (occurrence: None)
  Receive Date: 20041129
  Receipt Date: 20040830
  Transmission Date: 20050328
  Serious: No
  Sender: FDA-Public Use
  Company Number: 200416515US

PATIENT
  Age: 43 Year
  Sex: Female

DRUGS (10)
  1. KETEK [Suspect]
     Indication: SINUSITIS
  2. METFORMIN HCL [Concomitant]
  3. GLIBENCLAMIDE (GLUCOVANCE) [Concomitant]
  4. LEXAPRO [Concomitant]
  5. CRESTOR [Concomitant]
  6. HYDROCHLOROTHIAZIDE [Concomitant]
  7. CANDESARTAN CILEXETIL (ATACAND HCT) [Concomitant]
  8. ACETYLSALICYLIC ACID [Concomitant]
  9. RABEPRAZOLE SODIUM (ACIPHEX) [Concomitant]
  10. CLARITHROMYCIN (BIAXIN) [Concomitant]

REACTIONS (2)
  - PUPILS UNEQUAL [None]
  - VISION BLURRED [None]
